FAERS Safety Report 14017318 (Version 2)
Quarter: 2018Q1

REPORT INFORMATION
  Report Type: Spontaneous
  Country: CZ (occurrence: CZ)
  Receive Date: 20170927
  Receipt Date: 20180227
  Transmission Date: 20180508
  Serious: Yes (Hospitalization, Other)
  Sender: FDA-Public Use
  Company Number: PHHY2017CZ139366

PATIENT
  Sex: Female

DRUGS (2)
  1. DEGAN [Suspect]
     Active Substance: METOCLOPRAMIDE HYDROCHLORIDE
     Indication: NAUSEA
     Dosage: 10 MG, UNK
     Route: 042
  2. DEGAN [Suspect]
     Active Substance: METOCLOPRAMIDE HYDROCHLORIDE
     Indication: GASTROENTERITIS
     Dosage: UNK
     Route: 042

REACTIONS (19)
  - Depression [Recovered/Resolved]
  - Movement disorder [Recovered/Resolved]
  - Reduced facial expression [Recovered/Resolved]
  - Fatigue [Recovered/Resolved]
  - Extrapyramidal disorder [Recovered/Resolved]
  - Nausea [Recovered/Resolved]
  - Dizziness [Recovered/Resolved]
  - Musculoskeletal stiffness [Recovered/Resolved]
  - Psychomotor retardation [Recovered/Resolved]
  - Presyncope [Recovered/Resolved]
  - Somnolence [Recovered/Resolved]
  - Confusional state [Recovered/Resolved]
  - Parkinsonism [Recovered/Resolved]
  - Dystonia [Recovered/Resolved]
  - Akathisia [Recovered/Resolved]
  - Insomnia related to another mental condition [Recovered/Resolved]
  - Tremor [Recovered/Resolved]
  - Synkinesis [Recovered/Resolved]
  - Muscle rigidity [Recovered/Resolved]
